FAERS Safety Report 23552681 (Version 2)
Quarter: 2024Q1

REPORT INFORMATION
  Report Type: Report from Study
  Country: US (occurrence: US)
  Receive Date: 20240222
  Receipt Date: 20240226
  Transmission Date: 20240410
  Serious: Yes (Hospitalization)
  Sender: FDA-Public Use
  Company Number: US-BRISTOL-MYERS SQUIBB COMPANY-2024-024100

PATIENT
  Age: 88 Year
  Sex: Male

DRUGS (3)
  1. SPRYCEL [Suspect]
     Active Substance: DASATINIB
     Indication: Myelofibrosis
     Dates: start: 2019
  2. SPRYCEL [Suspect]
     Active Substance: DASATINIB
     Dosage: FREQ: 1 TIME A DAY
     Route: 048
     Dates: start: 202312, end: 20240204
  3. IMATINIB MESYLATE [Concomitant]
     Active Substance: IMATINIB MESYLATE
     Indication: Product used for unknown indication

REACTIONS (5)
  - Oedema [Unknown]
  - Dyspnoea [Unknown]
  - Haemoglobin decreased [Unknown]
  - Off label use [Unknown]
  - Fluid retention [Unknown]

NARRATIVE: CASE EVENT DATE: 20240201
